FAERS Safety Report 10343365 (Version 2)
Quarter: 2014Q3

REPORT INFORMATION
  Report Type: Spontaneous
  Country: UY (occurrence: None)
  Receive Date: 20140723
  Receipt Date: 20140815
  Transmission Date: 20150326
  Serious: Yes (Hospitalization)
  Sender: FDA-Public Use
  Company Number: SYM-2014-23155

PATIENT
  Age: 48 Year
  Sex: Male

DRUGS (3)
  1. WELLBUTRIN XL [Suspect]
     Active Substance: BUPROPION HYDROCHLORIDE
     Indication: DEPRESSION
     Route: 048
     Dates: start: 20140610
  2. TOPIRAMATE (TOPIRAMATE) [Concomitant]
     Active Substance: TOPIRAMATE
  3. ESZOPICLONE (ESZOPICLONE) [Concomitant]

REACTIONS (1)
  - Vasculitis [None]
